FAERS Safety Report 7944499-2 (Version None)
Quarter: 2011Q4

REPORT INFORMATION
  Report Type: 
  Country: None (occurrence: None)
  Receive Date: 20111114
  Receipt Date: 20111004
  Transmission Date: 20120403
  Serious: No
  Sender: FDA-Public Use
  Company Number: 1000022892

PATIENT
  Age: 40 Year
  Sex: Female

DRUGS (12)
  1. HYDROCODONE (HYDROCODONE) (HYDROCODONE) [Concomitant]
  2. MUCINEX (GUAIFENESIN) (GUAIFENESIN) [Concomitant]
  3. HYDROCHLOROTHIAZIDE [Concomitant]
  4. SAVELLA [Suspect]
     Indication: FIBROMYALGIA
     Dosage: SEE IMAGE
     Route: 048
     Dates: start: 20110301
  5. SAVELLA [Suspect]
     Indication: FIBROMYALGIA
     Dosage: SEE IMAGE
     Route: 048
     Dates: start: 20100101, end: 20100101
  6. SAVELLA [Suspect]
     Indication: FIBROMYALGIA
     Dosage: SEE IMAGE
     Route: 048
     Dates: end: 20110301
  7. SYNTHROID (LEVOTHYROXINE SODIUM) (LEVOTHYROXINE SODIUM) [Concomitant]
  8. LIDODERM (LIDOCAINE) (LIDOCAINE) [Concomitant]
  9. ALPRAZOLAM [Concomitant]
  10. IBUPROFEN [Concomitant]
  11. VITAMIN D (VITAMIN D) (VITAMIN D) [Concomitant]
  12. VALIUM [Concomitant]

REACTIONS (4)
  - WEIGHT DECREASED [None]
  - HAIR TEXTURE ABNORMAL [None]
  - OVERDOSE [None]
  - DRUG INEFFECTIVE [None]
